FAERS Safety Report 8007786-8 (Version None)
Quarter: 2011Q4

REPORT INFORMATION
  Report Type: 
  Country: None (occurrence: None)
  Receive Date: 20111227
  Receipt Date: 20111219
  Transmission Date: 20120403
  Serious: Yes (Hospitalization)
  Sender: FDA-Public Use
  Company Number: US-BAYER-2011-122093

PATIENT
  Sex: Female

DRUGS (3)
  1. DROSPIRENONE AND ETHINYL ESTRADIOL [Suspect]
  2. YAZ [Suspect]
     Dosage: UNK
     Dates: start: 20081201
  3. YASMIN [Suspect]

REACTIONS (6)
  - INJURY [None]
  - DEFORMITY [None]
  - PAIN [None]
  - DEEP VEIN THROMBOSIS [None]
  - ANXIETY [None]
  - ANHEDONIA [None]
